FAERS Safety Report 9136965 (Version 1)
Quarter: 2013Q1

REPORT INFORMATION
  Report Type: Spontaneous
  Country: CH (occurrence: CH)
  Receive Date: 20130304
  Receipt Date: 20130304
  Transmission Date: 20140127
  Serious: Yes (Disabling)
  Sender: FDA-Public Use
  Company Number: CH-BAYER-2013-022190

PATIENT
  Age: 74 Year
  Sex: Male

DRUGS (9)
  1. NEXAVAR [Suspect]
     Dosage: UNK
     Dates: start: 20120202, end: 20120913
  2. XANAX [Concomitant]
     Dosage: 1 MG, QD
  3. ATARAX [Concomitant]
     Dosage: 25 MG, QD
  4. PROSCAR [Concomitant]
     Dosage: 5 MG, QD
  5. ALDACTONE [SPIRONOLACTONE] [Concomitant]
     Dosage: 100 MG, QD
  6. TORASEMIDE [Concomitant]
     Dosage: 5 MG, QD
  7. MENADIONE [Concomitant]
     Dosage: 50 MG, QD
  8. ENOXAPARIN [Concomitant]
     Dosage: 40 MG, QD
  9. DAFALGAN [Concomitant]

REACTIONS (3)
  - Neuralgia [Not Recovered/Not Resolved]
  - Muscle spasms [Not Recovered/Not Resolved]
  - Peripheral sensory neuropathy [Not Recovered/Not Resolved]
